APPROVED DRUG PRODUCT: TRIAMCINOLONE ACETONIDE
Active Ingredient: TRIAMCINOLONE ACETONIDE
Strength: 40MG/ML
Dosage Form/Route: INJECTABLE;INJECTION
Application: A213543 | Product #001 | TE Code: AB
Applicant: LONG GROVE PHARMACEUTICALS LLC
Approved: Jan 19, 2022 | RLD: No | RS: No | Type: RX